FAERS Safety Report 12344840 (Version 2)
Quarter: 2016Q3

REPORT INFORMATION
  Report Type: Spontaneous
  Country: US (occurrence: US)
  Receive Date: 20160507
  Receipt Date: 20160823
  Transmission Date: 20161109
  Serious: Yes (Hospitalization, Other)
  Sender: FDA-Public Use
  Company Number: US-JNJFOC-20160416147

PATIENT
  Age: 21 Year
  Sex: Female

DRUGS (1)
  1. XARELTO [Suspect]
     Active Substance: RIVAROXABAN
     Indication: THROMBOSIS
     Dosage: 10 - 20 MG
     Route: 048
     Dates: start: 201208, end: 201302

REACTIONS (4)
  - Vaginal haemorrhage [Unknown]
  - Internal haemorrhage [Unknown]
  - Haematuria [Unknown]
  - Fall [Unknown]

NARRATIVE: CASE EVENT DATE: 20130202
